FAERS Safety Report 24102602 (Version 1)
Quarter: 2024Q3

REPORT INFORMATION
  Report Type: Report from Study
  Country: KR (occurrence: KR)
  Receive Date: 20240717
  Receipt Date: 20240717
  Transmission Date: 20241017
  Serious: Yes (Other)
  Sender: Unknown Manufacturer
  Company Number: KR-ROCHE-3267173

PATIENT

DRUGS (1)
  1. PRALSETINIB [Suspect]
     Active Substance: PRALSETINIB
     Indication: Non-small cell lung cancer
     Dosage: 300 MILLIGRAM, QD
     Route: 048
     Dates: start: 20210709

REACTIONS (6)
  - Neutropenia [Not Recovered/Not Resolved]
  - Anaemia [Recovering/Resolving]
  - White blood cell count decreased [Not Recovered/Not Resolved]
  - Abdominal pain lower [Not Recovered/Not Resolved]
  - Tinnitus [Not Recovered/Not Resolved]
  - Urinary tract infection [Recovered/Resolved]

NARRATIVE: CASE EVENT DATE: 20221116
